FAERS Safety Report 5382569-6 (Version None)
Quarter: 2007Q3

REPORT INFORMATION
  Report Type: 
  Country: None (occurrence: None)
  Receive Date: 20070710
  Receipt Date: 20070705
  Transmission Date: 20080115
  Serious: Yes (Death)
  Sender: FDA-Public Use
  Company Number: PHBS2007BR11391

PATIENT
  Sex: Female

DRUGS (1)
  1. ZELMAC [Suspect]

REACTIONS (1)
  - DEATH [None]
